FAERS Safety Report 15999749 (Version 3)
Quarter: 2019Q2

REPORT INFORMATION
  Report Type: Spontaneous
  Country: US (occurrence: US)
  Receive Date: 20190225
  Receipt Date: 20190507
  Transmission Date: 20190711
  Serious: No
  Sender: FDA-Public Use
  Company Number: US-PFIZER INC-2019082864

PATIENT
  Age: 77 Year
  Sex: Female

DRUGS (2)
  1. BETAMETHASONE DIPROPRIONATE [Concomitant]
     Active Substance: BETAMETHASONE DIPROPIONATE
     Indication: DERMATITIS ATOPIC
     Dosage: UNK UNK, AS NEEDED (2 WEEKS ON W/4 WEEKS OFF AS NEEDED)
  2. EUCRISA [Suspect]
     Active Substance: CRISABOROLE
     Indication: DERMATITIS ATOPIC
     Dosage: UNK, 2X/DAY (APPLY TWICE A DAY TO AFFECTED AREAS)
     Route: 061
     Dates: start: 20181102

REACTIONS (1)
  - Application site pain [Recovered/Resolved]
